FAERS Safety Report 15651144 (Version 1)
Quarter: 2018Q4

REPORT INFORMATION
  Report Type: Report from Study
  Country: US (occurrence: US)
  Receive Date: 20181123
  Receipt Date: 20181123
  Transmission Date: 20190205
  Serious: Yes (Other)
  Sender: FDA-Public Use
  Company Number: PHHY2018US159603

PATIENT
  Age: 28 Year
  Sex: Male

DRUGS (2)
  1. GILENYA [Suspect]
     Active Substance: FINGOLIMOD HYDROCHLORIDE
     Indication: MULTIPLE SCLEROSIS
     Dosage: UNK
     Route: 048
  2. TRAMADOL HCL [Concomitant]
     Active Substance: TRAMADOL HYDROCHLORIDE
     Indication: PAIN IN EXTREMITY
     Dosage: UNK
     Route: 065

REACTIONS (7)
  - Melanocytic naevus [Unknown]
  - Headache [Unknown]
  - Lymphocyte count decreased [Unknown]
  - Lentigo [Unknown]
  - Nausea [Unknown]
  - Fatigue [Unknown]
  - Obesity [Unknown]

NARRATIVE: CASE EVENT DATE: 20180322
